APPROVED DRUG PRODUCT: METAXALONE
Active Ingredient: METAXALONE
Strength: 800MG
Dosage Form/Route: TABLET;ORAL
Application: A203399 | Product #001 | TE Code: AB
Applicant: AMNEAL PHARMACEUTICALS
Approved: Jun 21, 2013 | RLD: No | RS: Yes | Type: RX